FAERS Safety Report 9458328 (Version 1)
Quarter: 2013Q3

REPORT INFORMATION
  Report Type: Spontaneous
  Country: US (occurrence: None)
  Receive Date: 20130813
  Receipt Date: 20130813
  Transmission Date: 20140515
  Serious: Yes (Hospitalization)
  Sender: FDA-Public Use
  Company Number: None

PATIENT
  Age: 88 Year
  Sex: Male

DRUGS (2)
  1. NEXAVAR 200MG BAYER [Suspect]
     Indication: HEPATIC CANCER
     Dosage: 400MG BID PO
     Route: 048
     Dates: start: 20130516, end: 20130630
  2. NEXAVAR 200MG BAYER [Suspect]
     Indication: PLASMA CELL MYELOMA
     Dosage: 400MG BID PO
     Route: 048
     Dates: start: 20130516, end: 20130630

REACTIONS (3)
  - Muscular weakness [None]
  - Haemorrhage [None]
  - Disorientation [None]
